FAERS Safety Report 5709939-8 (Version None)
Quarter: 2008Q2

REPORT INFORMATION
  Report Type: 
  Country: None (occurrence: None)
  Receive Date: 20080418
  Receipt Date: 20080407
  Transmission Date: 20081010
  Serious: Yes (Death, Hospitalization)
  Sender: FDA-Public Use
  Company Number: US-ELI_LILLY_AND_COMPANY-US200803003390

PATIENT
  Age: 82 Year
  Sex: Male

DRUGS (9)
  1. CYMBALTA [Suspect]
     Indication: DEPRESSION
     Dosage: 30 MG, UNK
  2. DEPAKOTE [Concomitant]
  3. LEVOFLOXACIN [Concomitant]
     Route: 042
  4. CEFTRIAXONE [Concomitant]
     Route: 042
  5. PANTOPRAZOLE SODIUM [Concomitant]
     Route: 048
  6. LISINOPRIL [Concomitant]
  7. IPRATROPIUM BROMIDE [Concomitant]
  8. HEPARIN [Concomitant]
  9. SOLU-MEDROL [Concomitant]

REACTIONS (3)
  - CARDIAC FAILURE [None]
  - PNEUMONIA [None]
  - RENAL FAILURE [None]
